FAERS Safety Report 6775600-4 (Version None)
Quarter: 2010Q2

REPORT INFORMATION
  Report Type: 
  Country: None (occurrence: None)
  Receive Date: 20100617
  Receipt Date: 20100614
  Transmission Date: 20101027
  Serious: Yes (Death)
  Sender: FDA-Public Use
  Company Number: US-PFIZER INC-2010074694

PATIENT
  Sex: Male
  Weight: 90.703 kg

DRUGS (6)
  1. REVATIO [Suspect]
     Indication: PULMONARY HYPERTENSION
     Dosage: 20 MG, 3X/DAY
     Route: 048
     Dates: start: 20090101
  2. NORVASC [Concomitant]
     Indication: HYPERTENSION
     Dosage: 5 MG, 1X/DAY
     Route: 048
  3. QUINAPRIL [Concomitant]
     Dosage: 40 MG, 1X/DAY
     Route: 048
  4. WARFARIN SODIUM [Concomitant]
     Indication: CARDIAC DISORDER
     Dosage: 5 MG, UNK
     Route: 048
  5. WARFARIN SODIUM [Concomitant]
     Dosage: 6 MG, ALTERNATE DAY
  6. TRACLEER [Concomitant]
     Indication: PULMONARY HYPERTENSION
     Dosage: 125 MG, 2X/DAY
     Route: 048
     Dates: start: 20090101

REACTIONS (1)
  - DEATH [None]
